FAERS Safety Report 5209668-3 (Version None)
Quarter: 2006Q4

REPORT INFORMATION
  Report Type: 
  Country: None (occurrence: None)
  Receive Date: 20061122
  Receipt Date: 20051205
  Transmission Date: 20070319
  Serious: Yes (Disabling, Other)
  Sender: FDA-Public Use
  Company Number: 2005132073

PATIENT
  Age: 49 Year
  Sex: Female

DRUGS (5)
  1. LIPITOR [Suspect]
     Indication: BLOOD CHOLESTEROL INCREASED
     Dosage: 20 MG (20 MG, 1 IN 1 D), ORAL
     Route: 048
     Dates: start: 20040623
  2. SKELAXIN [Concomitant]
  3. PREMARIN [Concomitant]
  4. AMBIEN [Concomitant]
  5. WELLBUTRIN SR [Concomitant]

REACTIONS (1)
  - MYOPATHY [None]
